FAERS Safety Report 14251497 (Version 2)
Quarter: 2018Q1

REPORT INFORMATION
  Report Type: Spontaneous
  Country: BE (occurrence: BE)
  Receive Date: 20171205
  Receipt Date: 20180206
  Transmission Date: 20180508
  Serious: Yes (Hospitalization, Other)
  Sender: FDA-Public Use
  Company Number: PHHY2017BE176801

PATIENT
  Age: 24 Year
  Sex: Male

DRUGS (2)
  1. COSENTYX [Suspect]
     Active Substance: SECUKINUMAB
     Indication: ANKYLOSING SPONDYLITIS
     Dosage: UNK
     Route: 058
     Dates: start: 201706
  2. CIMZIA [Suspect]
     Active Substance: CERTOLIZUMAB PEGOL
     Indication: ANKYLOSING SPONDYLITIS
     Dosage: UNK
     Route: 065
     Dates: start: 201611

REACTIONS (5)
  - Muscle fibrosis [Unknown]
  - Myalgia [Unknown]
  - Pain of skin [Unknown]
  - Skin hypertrophy [Unknown]
  - Eosinophilic fasciitis [Unknown]

NARRATIVE: CASE EVENT DATE: 201706
